FAERS Safety Report 14479673 (Version 3)
Quarter: 2018Q1

REPORT INFORMATION
  Report Type: Spontaneous
  Country: GR (occurrence: GR)
  Receive Date: 20180202
  Receipt Date: 20180314
  Transmission Date: 20180509
  Serious: Yes (Death, Hospitalization, Other)
  Sender: FDA-Public Use
  Company Number: PHHY2018GR009557

PATIENT
  Age: 86 Year
  Sex: Female

DRUGS (5)
  1. ENTRESTO [Suspect]
     Active Substance: SACUBITRIL\VALSARTAN
     Indication: PRODUCT USED FOR UNKNOWN INDICATION
     Route: 065
  2. ALDACTONE [Concomitant]
     Active Substance: SPIRONOLACTONE
     Indication: PRODUCT USED FOR UNKNOWN INDICATION
     Route: 065
  3. LASIX [Concomitant]
     Active Substance: FUROSEMIDE
     Indication: PRODUCT USED FOR UNKNOWN INDICATION
     Route: 065
  4. DUOPLAVIN [Concomitant]
     Active Substance: ASPIRIN\CLOPIDOGREL
     Indication: PRODUCT USED FOR UNKNOWN INDICATION
     Route: 065
  5. JANUMET [Concomitant]
     Active Substance: METFORMIN HYDROCHLORIDE\SITAGLIPTIN PHOSPHATE
     Indication: PRODUCT USED FOR UNKNOWN INDICATION
     Route: 065

REACTIONS (17)
  - Death [Fatal]
  - Vomiting [Recovered/Resolved]
  - Haematocrit decreased [Recovered/Resolved]
  - Back pain [Recovered/Resolved]
  - Troponin increased [Recovered/Resolved]
  - Diarrhoea [Unknown]
  - Generalised oedema [Recovered/Resolved]
  - Dyspnoea [Recovered/Resolved]
  - Blood albumin increased [Recovered/Resolved]
  - Tachycardia [Recovered/Resolved]
  - Blood creatinine increased [Recovered/Resolved]
  - Toxic epidermal necrolysis [Not Recovered/Not Resolved]
  - Anaemia [Unknown]
  - Gamma-glutamyltransferase increased [Not Recovered/Not Resolved]
  - Hip fracture [Unknown]
  - Swelling [Unknown]
  - Oedema [Unknown]

NARRATIVE: CASE EVENT DATE: 201802
